FAERS Safety Report 4692278-4 (Version None)
Quarter: 2005Q2

REPORT INFORMATION
  Report Type: 
  Country: None (occurrence: None)
  Receive Date: 20050614
  Receipt Date: 20050602
  Transmission Date: 20051028
  Serious: Yes (Life-Threatening, Hospitalization)
  Sender: FDA-Public Use
  Company Number: GBWYE714802JUN05

PATIENT
  Age: 26 Year
  Sex: Female

DRUGS (4)
  1. ACETAMINOPHEN [Suspect]
  2. ADVIL [Suspect]
  3. CITALOPRAM (CITALOPRAM, , 0) [Suspect]
     Indication: DEPRESSION
     Dosage: 20 MG, ORAL
     Route: 048
     Dates: start: 20050210, end: 20050524
  4. DIAZEPAM [Concomitant]

REACTIONS (5)
  - INTENTIONAL MISUSE [None]
  - INTENTIONAL SELF-INJURY [None]
  - LACERATION [None]
  - OVERDOSE [None]
  - SUICIDE ATTEMPT [None]
